FAERS Safety Report 10663516 (Version 1)
Quarter: 2014Q4

REPORT INFORMATION
  Report Type: Spontaneous
  Country: DE (occurrence: DE)
  Receive Date: 20141219
  Receipt Date: 20141219
  Transmission Date: 20150529
  Serious: Yes (Hospitalization, Other)
  Sender: FDA-Public Use
  Company Number: DE-SUN PHARMACEUTICAL INDUSTRIES LTD-2014SUN02855

PATIENT
  Age: 47 Year
  Sex: Female

DRUGS (12)
  1. CALCIUMFOLINAT SUN 10 MG/ML INJEKTIONSL?SUNG [Suspect]
     Active Substance: LEUCOVORIN CALCIUM
     Indication: METASTATIC NEOPLASM
     Dosage: 80% REDUCTION IN DOSE POST 3RD COURSE
     Route: 065
  2. CISPLATIN. [Suspect]
     Active Substance: CISPLATIN
     Indication: CHOLANGIOCARCINOMA
     Dosage: 25 MG/M2, UNK
     Route: 065
     Dates: start: 201302, end: 201311
  3. GEMCITABINE [Suspect]
     Active Substance: GEMCITABINE\GEMCITABINE HYDROCHLORIDE
     Indication: CHOLANGIOCARCINOMA
     Dosage: 1000 MG/M2, UNK
     Route: 065
     Dates: start: 201302, end: 201311
  4. OXALIPLATIN. [Suspect]
     Active Substance: OXALIPLATIN
     Indication: METASTATIC NEOPLASM
     Dosage: 80% REDUCTION IN DOSE POST 3RD COURSEUNK
     Route: 065
  5. IRINOTECAN [Suspect]
     Active Substance: IRINOTECAN
     Indication: METASTATIC NEOPLASM
     Dosage: 80% REDUCTION IN DOSE POST 3RD COURSE
     Route: 065
  6. OXALIPLATIN. [Suspect]
     Active Substance: OXALIPLATIN
     Indication: CHOLANGIOCARCINOMA
     Dosage: 85 MG/M2, UNK
     Route: 065
     Dates: end: 201302
  7. 5-FLUOROURACIL [Suspect]
     Active Substance: FLUOROURACIL
     Indication: METASTATIC NEOPLASM
     Dosage: 80% REDUCTION IN DOSE POST 3RD COURSE
     Route: 065
  8. CALCIUMFOLINAT SUN 10 MG/ML INJEKTIONSL?SUNG [Suspect]
     Active Substance: LEUCOVORIN CALCIUM
     Indication: CHOLANGIOCARCINOMA
     Dosage: 200 MG/M2, UNK
     Route: 065
     Dates: end: 201302
  9. 5-FLUOROURACIL [Suspect]
     Active Substance: FLUOROURACIL
     Indication: CHOLANGIOCARCINOMA
     Dosage: 3200 MG/M2, UNK
     Route: 065
     Dates: end: 201302
  10. IRINOTECAN [Suspect]
     Active Substance: IRINOTECAN
     Indication: CHOLANGIOCARCINOMA
     Dosage: 165 MG/M2, UNK
     Route: 065
     Dates: end: 201302
  11. GEMCITABINE [Suspect]
     Active Substance: GEMCITABINE\GEMCITABINE HYDROCHLORIDE
     Indication: METASTATIC NEOPLASM
  12. CISPLATIN. [Suspect]
     Active Substance: CISPLATIN
     Indication: METASTATIC NEOPLASM

REACTIONS (8)
  - Ascites [Not Recovered/Not Resolved]
  - Thrombocytopenia [Unknown]
  - Fatigue [Unknown]
  - Peritonitis bacterial [Not Recovered/Not Resolved]
  - Opportunistic infection [Unknown]
  - Abdominal pain [Unknown]
  - Nausea [Unknown]
  - Polyneuropathy [Unknown]

NARRATIVE: CASE EVENT DATE: 201310
